FAERS Safety Report 6997782-1 (Version None)
Quarter: 2010Q3

REPORT INFORMATION
  Report Type: 
  Country: None (occurrence: None)
  Receive Date: 20100920
  Receipt Date: 20100909
  Transmission Date: 20110219
  Serious: Yes (Hospitalization)
  Sender: FDA-Public Use
  Company Number: DE-BIOGENIDEC-2010BI031153

PATIENT
  Age: 46 Year
  Sex: Female

DRUGS (1)
  1. TYSABRI [Suspect]
     Indication: RELAPSING-REMITTING MULTIPLE SCLEROSIS
     Route: 042

REACTIONS (4)
  - ABDOMINAL PAIN UPPER [None]
  - BILE DUCT STENOSIS [None]
  - DIARRHOEA [None]
  - PANCREATITIS [None]
